FAERS Safety Report 5328184-1 (Version None)
Quarter: 2007Q2

REPORT INFORMATION
  Report Type: 
  Country: None (occurrence: None)
  Receive Date: 20070514
  Receipt Date: 20070314
  Transmission Date: 20071010
  Serious: Yes (Life-Threatening, Hospitalization)
  Sender: FDA-Public Use
  Company Number: 6032329

PATIENT
  Age: 46 Year
  Sex: Male

DRUGS (3)
  1. METFORMIN HCL [Suspect]
     Indication: DIABETES MELLITUS
     Dosage: (56 MG)
  2. ETHANOL (ETHANOL) [Suspect]
     Indication: DRUG USE FOR UNKNOWN INDICATION
     Dosage: (500 ML)
  3. RAMIPRIL [Suspect]
     Indication: HYPERTENSION
     Dosage: (35 MG)

REACTIONS (12)
  - ABDOMINAL PAIN [None]
  - APNOEA [None]
  - CARDIAC ARREST [None]
  - COMPARTMENT SYNDROME [None]
  - DIALYSIS [None]
  - DIARRHOEA [None]
  - LEG AMPUTATION [None]
  - METABOLIC ACIDOSIS [None]
  - OVERDOSE [None]
  - PARTIAL SEIZURES [None]
  - RHABDOMYOLYSIS [None]
  - VOMITING [None]
